FAERS Safety Report 13462315 (Version 1)
Quarter: 2017Q2

REPORT INFORMATION
  Report Type: Report from Study
  Country: IT (occurrence: IT)
  Receive Date: 20170420
  Receipt Date: 20170420
  Transmission Date: 20170830
  Serious: Yes (Hospitalization)
  Sender: FDA-Public Use
  Company Number: IT-ROCHE-1642488

PATIENT
  Age: 39 Year
  Sex: Female
  Weight: 52 kg

DRUGS (57)
  1. SOLU-MEDROL [Concomitant]
     Active Substance: METHYLPREDNISOLONE SODIUM SUCCINATE
     Route: 065
     Dates: start: 20120613, end: 20120618
  2. TACHIPIRINA [Concomitant]
     Active Substance: ACETAMINOPHEN
     Route: 065
     Dates: start: 20130222, end: 20130223
  3. TACHIPIRINA [Concomitant]
     Active Substance: ACETAMINOPHEN
     Route: 065
     Dates: start: 20131225, end: 20131226
  4. TACHIPIRINA [Concomitant]
     Active Substance: ACETAMINOPHEN
     Route: 065
     Dates: start: 20140103, end: 20140104
  5. OXYBUTYNIN [Concomitant]
     Active Substance: OXYBUTYNIN
     Route: 065
     Dates: start: 20140104, end: 20141020
  6. FLUIFORT (ITALY) [Concomitant]
     Route: 065
     Dates: start: 20140123, end: 20141026
  7. PARACETAMOL [Concomitant]
     Active Substance: ACETAMINOPHEN
     Dosage: BASELINE (WEEK 1)?THEN ADMINISTERED ON WEEKS 2, 24, 48, 72 AND THEN OLE WEEKS 0, 2, 24, 48, 72
     Route: 065
     Dates: start: 20120809
  8. METHYLPREDNISOLONE. [Concomitant]
     Active Substance: METHYLPREDNISOLONE
     Dosage: BASELINE (WEEK 1)?THEN ADMINISTERED ON WEEKS 2, 24, 48, 72 AND THEN OLE WEEKS 0, 2, 24, 48, 72
     Route: 065
     Dates: start: 20120809
  9. DROSURE [Concomitant]
     Route: 065
     Dates: start: 20120723
  10. MOMENT (ITALY) [Concomitant]
     Route: 065
     Dates: start: 20130112, end: 20130112
  11. TACHIPIRINA [Concomitant]
     Active Substance: ACETAMINOPHEN
     Route: 065
     Dates: start: 20130224, end: 20130224
  12. TACHIPIRINA [Concomitant]
     Active Substance: ACETAMINOPHEN
     Route: 065
     Dates: start: 20141207, end: 20141207
  13. AUGMENTIN [Concomitant]
     Active Substance: AMOXICILLIN\CLAVULANATE POTASSIUM
     Route: 065
     Dates: start: 20140512, end: 20140516
  14. OCRELIZUMAB [Suspect]
     Active Substance: OCRELIZUMAB
     Route: 042
     Dates: start: 20130710, end: 20130710
  15. OCRELIZUMAB [Suspect]
     Active Substance: OCRELIZUMAB
     Indication: RELAPSING-REMITTING MULTIPLE SCLEROSIS
     Route: 042
     Dates: start: 20140626, end: 20140626
  16. OKI [Concomitant]
     Active Substance: KETOPROFEN LYSINE
     Route: 065
     Dates: start: 20120823, end: 20120827
  17. CLENIL (ITALY) [Concomitant]
     Route: 065
     Dates: start: 20130613, end: 20130617
  18. MONURIL [Concomitant]
     Active Substance: FOSFOMYCIN SODIUM
     Route: 065
     Dates: start: 20150530, end: 20150530
  19. OCRELIZUMAB [Suspect]
     Active Substance: OCRELIZUMAB
     Indication: RELAPSING-REMITTING MULTIPLE SCLEROSIS
     Route: 042
     Dates: start: 20120809, end: 20120809
  20. PLACEBO [Suspect]
     Active Substance: UNSPECIFIED INGREDIENT
     Indication: RELAPSING-REMITTING MULTIPLE SCLEROSIS
     Route: 058
     Dates: start: 20120809, end: 20140625
  21. OCRELIZUMAB [Suspect]
     Active Substance: OCRELIZUMAB
     Route: 042
     Dates: start: 20141211, end: 20141211
  22. DELTACORTENE [Concomitant]
     Active Substance: PREDNISONE
     Route: 065
     Dates: start: 20120619, end: 20120620
  23. DELTACORTENE [Concomitant]
     Active Substance: PREDNISONE
     Route: 065
     Dates: start: 20120621, end: 20120622
  24. OKI [Concomitant]
     Active Substance: KETOPROFEN LYSINE
     Route: 065
     Dates: start: 20140316, end: 20140320
  25. OKI [Concomitant]
     Active Substance: KETOPROFEN LYSINE
     Route: 065
     Dates: start: 20140610, end: 20140610
  26. TACHIPIRINA [Concomitant]
     Active Substance: ACETAMINOPHEN
     Route: 065
     Dates: start: 20130110, end: 20130110
  27. TACHIPIRINA [Concomitant]
     Active Substance: ACETAMINOPHEN
     Route: 065
     Dates: start: 20140123, end: 20140123
  28. TACHIPIRINA [Concomitant]
     Active Substance: ACETAMINOPHEN
     Route: 065
     Dates: start: 20140913, end: 20140913
  29. BRUFEN [Concomitant]
     Active Substance: IBUPROFEN
     Route: 065
     Dates: start: 20130109, end: 20130109
  30. AUGMENTIN [Concomitant]
     Active Substance: AMOXICILLIN\CLAVULANATE POTASSIUM
     Route: 065
     Dates: start: 20130224, end: 20130227
  31. FLUIMICIL [Concomitant]
     Active Substance: ACETYLCYSTEINE
     Route: 065
     Dates: start: 20130606, end: 20130613
  32. OCRELIZUMAB [Suspect]
     Active Substance: OCRELIZUMAB
     Route: 042
     Dates: start: 20140102, end: 20140102
  33. OKI [Concomitant]
     Active Substance: KETOPROFEN LYSINE
     Route: 065
     Dates: start: 20150201, end: 20150215
  34. TACHIPIRINA [Concomitant]
     Active Substance: ACETAMINOPHEN
     Route: 065
     Dates: start: 20121110
  35. FLUNARIZINE [Concomitant]
     Active Substance: FLUNARIZINE
     Route: 065
     Dates: start: 20130122, end: 20130610
  36. BUSCOPAN [Concomitant]
     Active Substance: BUTYLSCOPOLAMINE BROMIDE
     Route: 065
     Dates: start: 20150526, end: 20150526
  37. CHLORPHENAMINE [Concomitant]
     Active Substance: CHLORPHENIRAMINE MALEATE
     Dosage: BASELINE (WEEK 1)?THEN ADMINISTERED ON WEEKS 2, 24, 48, 72 AND THEN OLE WEEKS 0, 2, 24, 48, 72
     Route: 065
     Dates: start: 20120809
  38. METHYLPREDNISOLONE. [Concomitant]
     Active Substance: METHYLPREDNISOLONE
     Route: 065
     Dates: start: 20141206, end: 20141210
  39. BIMIXIN [Concomitant]
     Route: 065
     Dates: start: 20121227, end: 20121227
  40. AUGMENTIN [Concomitant]
     Active Substance: AMOXICILLIN\CLAVULANATE POTASSIUM
     Route: 065
     Dates: start: 20130613, end: 20130617
  41. MACMIROR COMPLEX [Concomitant]
     Route: 067
     Dates: start: 20150908, end: 20150914
  42. OCRELIZUMAB [Suspect]
     Active Substance: OCRELIZUMAB
     Route: 042
     Dates: start: 20130122, end: 20130122
  43. OCRELIZUMAB [Suspect]
     Active Substance: OCRELIZUMAB
     Route: 042
     Dates: start: 20140710, end: 20140710
  44. OCRELIZUMAB [Suspect]
     Active Substance: OCRELIZUMAB
     Route: 042
     Dates: start: 20150527, end: 20150527
  45. DELTACORTENE [Concomitant]
     Active Substance: PREDNISONE
     Route: 065
     Dates: start: 20120623, end: 20120623
  46. OKI [Concomitant]
     Active Substance: KETOPROFEN LYSINE
     Route: 065
     Dates: start: 20140910, end: 20140910
  47. MOMENT (ITALY) [Concomitant]
     Route: 065
     Dates: start: 20121022
  48. TACHIPIRINA [Concomitant]
     Active Substance: ACETAMINOPHEN
     Route: 065
     Dates: start: 20121027, end: 20121027
  49. ACICLOVIR [Concomitant]
     Active Substance: ACYCLOVIR
     Route: 065
     Dates: start: 20150201, end: 20150215
  50. OCRELIZUMAB [Suspect]
     Active Substance: OCRELIZUMAB
     Route: 042
     Dates: start: 20151125, end: 20151125
  51. TACHIPIRINA [Concomitant]
     Active Substance: ACETAMINOPHEN
     Route: 065
     Dates: start: 20121024, end: 20121024
  52. AUGMENTIN [Concomitant]
     Active Substance: AMOXICILLIN\CLAVULANATE POTASSIUM
     Route: 065
     Dates: start: 20140627, end: 20150701
  53. CLENIL (ITALY) [Concomitant]
     Route: 055
     Dates: start: 20130613, end: 20130617
  54. LANSOPRAZOLO [Concomitant]
     Active Substance: LANSOPRAZOLE
     Route: 065
     Dates: start: 20141206, end: 20141210
  55. ACICLOVIR [Concomitant]
     Active Substance: ACYCLOVIR
     Route: 065
     Dates: start: 20151105, end: 20151112
  56. BUSCOPAN [Concomitant]
     Active Substance: BUTYLSCOPOLAMINE BROMIDE
     Route: 065
     Dates: start: 20150519, end: 20150519
  57. OCRELIZUMAB [Suspect]
     Active Substance: OCRELIZUMAB
     Route: 042
     Dates: start: 20120823, end: 20120823

REACTIONS (1)
  - Urinary tract infection [Recovered/Resolved]

NARRATIVE: CASE EVENT DATE: 20151001
